FAERS Safety Report 5618463-2 (Version None)
Quarter: 2008Q1

REPORT INFORMATION
  Report Type: 
  Country: None (occurrence: None)
  Receive Date: 20080207
  Receipt Date: 20080201
  Transmission Date: 20080703
  Serious: Yes (Hospitalization)
  Sender: FDA-Public Use
  Company Number: A0706898A

PATIENT
  Sex: Female

DRUGS (2)
  1. IMITREX [Suspect]
     Indication: MIGRAINE
     Route: 058
     Dates: start: 19940101
  2. NO CONCURRENT MEDICATION [Concomitant]

REACTIONS (3)
  - ANAPHYLACTIC SHOCK [None]
  - CHOKING SENSATION [None]
  - HYPERSENSITIVITY [None]
